FAERS Safety Report 20107505 (Version 1)
Quarter: 2021Q4

REPORT INFORMATION
  Report Type: Report from Study
  Country: BR (occurrence: BR)
  Receive Date: 20211124
  Receipt Date: 20211124
  Transmission Date: 20220303
  Serious: Yes (Other)
  Sender: FDA-Public Use
  Company Number: BR-NOVARTISPH-NVSC2021BR266154

PATIENT
  Age: 33 Year
  Sex: Female

DRUGS (4)
  1. ANASTROZOLE [Suspect]
     Active Substance: ANASTROZOLE
     Indication: Palliative care
     Dosage: 1 MG, QD
     Route: 065
     Dates: start: 201908
  2. RIBOCICLIB [Suspect]
     Active Substance: RIBOCICLIB
     Indication: Palliative care
     Dosage: 600 MG (600 MG PER 21 DAYS AT EVERY 28 DAYS)
     Route: 065
     Dates: start: 201908
  3. ZOLEDRONIC ACID [Suspect]
     Active Substance: ZOLEDRONIC ACID
     Indication: Bone lesion
     Dosage: 4 MG (EVERY 90 DAYS)
     Route: 042
     Dates: start: 201908
  4. GOSERELIN [Suspect]
     Active Substance: GOSERELIN
     Indication: Palliative care
     Dosage: 3.6 MG, QMO
     Route: 065
     Dates: start: 201908

REACTIONS (1)
  - Neutropenia [Recovered/Resolved]
